FAERS Safety Report 11086569 (Version 1)
Quarter: 2015Q2

REPORT INFORMATION
  Report Type: Spontaneous
  Country: US (occurrence: None)
  Receive Date: 20150430
  Receipt Date: 20150430
  Transmission Date: 20150821
  Serious: Yes (Other)
  Sender: FDA-Public Use
  Company Number: 2015AP008338

PATIENT
  Age: 66 Year
  Sex: Female
  Weight: 80 kg

DRUGS (4)
  1. FERRIPROX [Suspect]
     Active Substance: DEFERIPRONE
     Indication: HAEMOCHROMATOSIS
     Route: 048
     Dates: start: 20150401, end: 201504
  2. DIAZEPAM. [Concomitant]
     Active Substance: DIAZEPAM
  3. MULTIVITAMIN (ASCORBIC ACID, CALCIUM PANTOTHENATE, ERGOCALCIFEROL, NICOTINAMIDE, PYRIDOXINE HYDROCHLORIDE, RETINOL, IBOFLAVIN, THIAMINE HYDROCHLORIDE) [Concomitant]
  4. FERRIPROX [Suspect]
     Active Substance: DEFERIPRONE
     Indication: MYELODYSPLASTIC SYNDROME
     Route: 048
     Dates: start: 20150401, end: 201504

REACTIONS (10)
  - Sedation [None]
  - Crying [None]
  - Migraine [None]
  - Diarrhoea [None]
  - Palpitations [None]
  - Nausea [None]
  - Vomiting [None]
  - Disturbance in attention [None]
  - Dysarthria [None]
  - Depression [None]

NARRATIVE: CASE EVENT DATE: 20150402
